FAERS Safety Report 8688050 (Version 2)
Quarter: 2013Q1

REPORT INFORMATION
  Report Type: Report from Study
  Country: DE (occurrence: DE)
  Receive Date: 20120727
  Receipt Date: 20130215
  Transmission Date: 20140127
  Serious: Yes (Life-Threatening, Hospitalization)
  Sender: FDA-Public Use
  Company Number: DE-ROCHE-1091098

PATIENT
  Age: 64 Year
  Sex: Male
  Weight: 62.2 kg

DRUGS (11)
  1. METHOXY POLYETHYLENE GLYCOL-EPOETIN BETA [Suspect]
     Indication: PRODUCT USED FOR UNKNOWN INDICATION
     Route: 042
     Dates: start: 20111228
  2. ASS [Concomitant]
     Route: 065
     Dates: start: 20110525
  3. RAMIPRIL [Concomitant]
     Route: 065
     Dates: start: 20100205
  4. BISOPROLOL [Concomitant]
     Route: 065
     Dates: start: 20111014
  5. AMLODIPIN [Concomitant]
     Route: 065
     Dates: start: 20111010
  6. TORASEMID [Concomitant]
     Route: 065
     Dates: start: 20110704
  7. PRAVASTATIN [Concomitant]
     Route: 065
     Dates: start: 20080401
  8. OMEPRAZOL [Concomitant]
     Route: 065
     Dates: start: 20080721
  9. CHOLECALCIFEROL [Concomitant]
     Route: 065
     Dates: start: 20080811
  10. AMITRIPTYLINE [Concomitant]
     Route: 065
     Dates: start: 20101206
  11. GABAPENTIN [Concomitant]
     Route: 065
     Dates: start: 20100603

REACTIONS (2)
  - Pericardial effusion [Recovered/Resolved]
  - Viral myocarditis [Unknown]
